FAERS Safety Report 8364905-1 (Version None)
Quarter: 2012Q2

REPORT INFORMATION
  Report Type: 
  Country: None (occurrence: None)
  Receive Date: 20120516
  Receipt Date: 20120405
  Transmission Date: 20120825
  Serious: Yes (Other)
  Sender: FDA-Public Use
  Company Number: FR-ROCHE-1056093

PATIENT
  Sex: Female
  Weight: 70 kg

DRUGS (3)
  1. MODURETIC 5-50 [Concomitant]
  2. XENICAL [Suspect]
     Indication: OVERWEIGHT
     Route: 048
     Dates: start: 20120307, end: 20120310
  3. ABUFENE [Concomitant]

REACTIONS (3)
  - DIARRHOEA [None]
  - HAEMATOCHEZIA [None]
  - INTENTIONAL DRUG MISUSE [None]
